FAERS Safety Report 7731786-6 (Version None)
Quarter: 2011Q3

REPORT INFORMATION
  Report Type: 
  Country: None (occurrence: None)
  Receive Date: 20110906
  Receipt Date: 20110901
  Transmission Date: 20111222
  Serious: Yes (Other)
  Sender: FDA-Public Use
  Company Number: PHHY2011US58194

PATIENT
  Age: 40 Year
  Sex: Male

DRUGS (23)
  1. GILENYA [Suspect]
     Dosage: 0.5 MG, QD
     Route: 048
     Dates: start: 20110624, end: 20110701
  2. ALLEGRA [Concomitant]
  3. ZOLOFT [Concomitant]
     Dosage: UNK
  4. LACTULOSE [Concomitant]
     Dosage: UNK
  5. VITAMIN D [Concomitant]
     Dosage: UNK
  6. TRAZODONE HCL [Concomitant]
     Dosage: UNK
  7. BUSPAR [Concomitant]
     Dosage: UNK
  8. ADVIL LIQUI-GELS [Concomitant]
     Dosage: UNK
  9. GILENYA [Suspect]
     Indication: MULTIPLE SCLEROSIS
     Dosage: 0.5 MG, QD
     Route: 048
     Dates: start: 20110609, end: 20110620
  10. LYRICA [Concomitant]
     Dosage: UNK
  11. DECONGESTANTS AND ANTIALLERGICS [Concomitant]
     Dosage: UNK
  12. MULTI-VITAMIN [Concomitant]
     Dosage: UNK
  13. FLONASE [Concomitant]
     Dosage: UNK
  14. NASONEX [Concomitant]
     Dosage: UNK
  15. ASCORBIC ACID [Concomitant]
     Dosage: UNK
  16. SAW PALMETTO [Concomitant]
     Dosage: UNK
  17. PROAIR HFA [Concomitant]
     Dosage: 2 DF, PRN (FOR FOUR DAYS)
  18. AMITIZA [Concomitant]
     Dosage: UNK
  19. VITAMIN B-12 [Concomitant]
     Dosage: UNK
  20. BACLOFEN [Concomitant]
     Dosage: UNK
  21. PREVACID [Concomitant]
     Dosage: UNK
  22. SINGULAIR [Concomitant]
     Dosage: UNK
  23. TOBRAMYCIN [Concomitant]
     Dosage: UNK

REACTIONS (15)
  - DIARRHOEA [None]
  - FALL [None]
  - DEPRESSION [None]
  - GAIT DISTURBANCE [None]
  - AMNESIA [None]
  - PARAESTHESIA [None]
  - PAIN [None]
  - BACK PAIN [None]
  - DIZZINESS [None]
  - MYALGIA [None]
  - FATIGUE [None]
  - NECK PAIN [None]
  - CONFUSIONAL STATE [None]
  - ARTHRALGIA [None]
  - HEADACHE [None]
